FAERS Safety Report 7295619-7 (Version None)
Quarter: 2011Q1

REPORT INFORMATION
  Report Type: 
  Country: None (occurrence: None)
  Receive Date: 20110216
  Receipt Date: 20101229
  Transmission Date: 20110831
  Serious: No
  Sender: FDA-Public Use
  Company Number: US-ABBOTT-10P-163-0694169-00

PATIENT
  Sex: Female
  Weight: 81.72 kg

DRUGS (3)
  1. PRESCRIPTION NASAL SPRAY [Concomitant]
     Indication: PRODUCT USED FOR UNKNOWN INDICATION
  2. ASPIRIN [Concomitant]
     Indication: PRODUCT USED FOR UNKNOWN INDICATION
  3. SIMCOR [Suspect]
     Indication: HYPERLIPIDAEMIA
     Dosage: 1000/40 AT BEDTIME
     Dates: start: 20101201

REACTIONS (4)
  - DRY MOUTH [None]
  - HYPERHIDROSIS [None]
  - THIRST [None]
  - MUSCULOSKELETAL DISCOMFORT [None]
